FAERS Safety Report 10034450 (Version 2)
Quarter: 2014Q2

REPORT INFORMATION
  Report Type: Spontaneous
  Country: JP (occurrence: JP)
  Receive Date: 20140325
  Receipt Date: 20140410
  Transmission Date: 20141212
  Serious: Yes (Other)
  Sender: FDA-Public Use
  Company Number: JP-SA-2014SA033544

PATIENT
  Age: 55 Year
  Sex: Female

DRUGS (3)
  1. DELLEGRA [Suspect]
     Indication: RHINITIS ALLERGIC
     Dosage: DOSE: 4 TABLETS/DAY
     Route: 048
     Dates: start: 20140227, end: 20140228
  2. PAXIL [Suspect]
  3. DEPAS [Suspect]

REACTIONS (2)
  - Loss of consciousness [Recovered/Resolved]
  - Dizziness [Recovered/Resolved]
